FAERS Safety Report 5870082-9 (Version None)
Quarter: 2008Q3

REPORT INFORMATION
  Report Type: 
  Country: None (occurrence: None)
  Receive Date: 20080904
  Receipt Date: 20080502
  Transmission Date: 20090109
  Serious: Yes (Other)
  Sender: FDA-Public Use
  Company Number: BR-PFIZER INC-2008015632

PATIENT
  Sex: Male

DRUGS (2)
  1. CHANTIX [Suspect]
     Route: 048
  2. LIPITOR [Suspect]
     Route: 048

REACTIONS (2)
  - ANGIOPLASTY [None]
  - HEPATOMEGALY [None]
